FAERS Safety Report 4396273-4 (Version None)
Quarter: 2004Q3

REPORT INFORMATION
  Report Type: 
  Country: None (occurrence: None)
  Receive Date: 20040709
  Receipt Date: 20040706
  Transmission Date: 20050211
  Serious: Yes (Death)
  Sender: FDA-Public Use
  Company Number: 2004-118031-NL

PATIENT
  Age: 60 Year
  Sex: Female

DRUGS (4)
  1. MIRTAZAPINE [Suspect]
     Dosage: 5857.5 MG ONCE
     Route: 048
     Dates: start: 20030508
  2. ZOPICLONE [Concomitant]
  3. OXAZEPAM [Concomitant]
  4. CHLORPROTHIXENE HYDROCHLORIDE [Concomitant]

REACTIONS (2)
  - COMPLETED SUICIDE [None]
  - INTENTIONAL OVERDOSE [None]
